FAERS Safety Report 8424467-7 (Version None)
Quarter: 2012Q2

REPORT INFORMATION
  Report Type: 
  Country: None (occurrence: None)
  Receive Date: 20120610
  Receipt Date: 20120601
  Transmission Date: 20120825
  Serious: Yes (Death, Hospitalization, Other)
  Sender: FDA-Public Use
  Company Number: US-BRISTOL-MYERS SQUIBB COMPANY-13630884

PATIENT
  Age: 64 Year
  Sex: Male
  Weight: 111 kg

DRUGS (2)
  1. ERBITUX [Suspect]
     Indication: HEAD AND NECK CANCER
     Dosage: ARM 1:400MG/M2,IV:120 MIN,DAY 1,OTHER CHEMO/RADIATION THAT DAY/WEEK.LAST ADMINSTERED:30OCT06,540MG
     Route: 042
     Dates: start: 20061030, end: 20061030
  2. TAXOTERE [Suspect]
     Indication: HEAD AND NECK CANCER
     Dosage: TOTAL DOSE: 32 MG,LAST ADMINISTERED:30OCT2006
     Route: 042
     Dates: start: 20061030, end: 20061030

REACTIONS (7)
  - DERMATITIS ACNEIFORM [None]
  - PNEUMONIA STAPHYLOCOCCAL [None]
  - DYSPHONIA [None]
  - WEIGHT DECREASED [None]
  - MYOCARDIAL INFARCTION [None]
  - DYSPNOEA [None]
  - RADIATION INJURY [None]
